FAERS Safety Report 4549428-X (Version None)
Quarter: 2005Q1

REPORT INFORMATION
  Report Type: 
  Country: None (occurrence: None)
  Receive Date: 20050111
  Receipt Date: 20050104
  Transmission Date: 20050727
  Serious: Yes (Hospitalization)
  Sender: FDA-Public Use
  Company Number: 200510205GDDC

PATIENT
  Age: 80 Year
  Sex: Male

DRUGS (12)
  1. RIFAMPICIN [Suspect]
     Indication: PNEUMONIA STAPHYLOCOCCAL
     Route: 042
     Dates: start: 20041123, end: 20041124
  2. LINEZOLID [Suspect]
     Indication: PNEUMONIA STAPHYLOCOCCAL
     Route: 042
     Dates: start: 20041123, end: 20041207
  3. PHENYTOIN [Concomitant]
     Indication: EPILEPSY
     Route: 048
  4. OMEPRAZOLE [Concomitant]
     Route: 048
  5. ACETAMINOPHEN [Concomitant]
     Route: 048
  6. ASPIRIN [Concomitant]
     Route: 048
  7. MOVICOL [Concomitant]
     Dosage: DOSE: 1 SACHET
  8. ADCAL-D3 [Concomitant]
  9. ENOXAPARIN SODIUM [Concomitant]
  10. MEROPENEM [Concomitant]
     Dates: start: 20041125, end: 20041202
  11. CIPROFLOXACIN [Concomitant]
  12. METRONIDAZOLE [Concomitant]

REACTIONS (2)
  - DRUG INTERACTION POTENTIATION [None]
  - EPILEPSY [None]
